FAERS Safety Report 7946590-3 (Version None)
Quarter: 2011Q4

REPORT INFORMATION
  Report Type: 
  Country: None (occurrence: None)
  Receive Date: 20111129
  Receipt Date: 20111117
  Transmission Date: 20120403
  Serious: No
  Sender: FDA-Public Use
  Company Number: US-B.I. PHARMACEUTICALS,INC./RIDGEFIELD-2011-BP-26444BP

PATIENT
  Sex: Female

DRUGS (3)
  1. ZANTAC 75 [Suspect]
     Indication: DYSPEPSIA
     Dosage: 75 MG
     Route: 048
     Dates: start: 20111114
  2. ZANTAC 75 [Suspect]
  3. XANAX [Concomitant]
     Indication: PANIC ATTACK
     Dosage: 1 MG
     Route: 048

REACTIONS (2)
  - BLOOD PRESSURE INCREASED [None]
  - DYSGEUSIA [None]
